FAERS Safety Report 18588388 (Version 2)
Quarter: 2020Q4

REPORT INFORMATION
  Report Type: Report from Study
  Country: DE (occurrence: DE)
  Receive Date: 20201207
  Receipt Date: 20201218
  Transmission Date: 20210114
  Serious: Yes (Other)
  Sender: FDA-Public Use
  Company Number: DE-JAZZ-2020-DE-015847

PATIENT
  Age: 36 Year
  Sex: Male
  Weight: 106 kg

DRUGS (2)
  1. CPX-351 [Suspect]
     Active Substance: CYTARABINE\DAUNORUBICIN
     Dosage: 108.24 MG DAUNORUBICIN, 246  MG CYTARABINE
     Route: 042
     Dates: start: 20200910, end: 20200914
  2. CPX-351 [Suspect]
     Active Substance: CYTARABINE\DAUNORUBICIN
     Dosage: 106.97 MG DAUNORUBICIN, 243.11 MG CYTARABINE
     Route: 042
     Dates: start: 20201026, end: 20201028

REACTIONS (1)
  - Anal fistula [Recovering/Resolving]

NARRATIVE: CASE EVENT DATE: 20200920
